FAERS Safety Report 13527446 (Version 1)
Quarter: 2017Q2

REPORT INFORMATION
  Report Type: Spontaneous
  Country: IE (occurrence: IE)
  Receive Date: 20170509
  Receipt Date: 20170509
  Transmission Date: 20170830
  Serious: Yes (Other)
  Sender: FDA-Public Use
  Company Number: IE-SEBELA IRELAND LIMITED-2017SEB00272

PATIENT
  Age: 37 Year
  Sex: Male

DRUGS (4)
  1. FLUIDS [Concomitant]
     Active Substance: UNSPECIFIED INGREDIENT
     Route: 042
  2. 5-AMINOSALICYLIC ACID [Concomitant]
     Active Substance: MESALAMINE
     Route: 048
  3. HYDROCORTISONE. [Suspect]
     Active Substance: HYDROCORTISONE
     Indication: COLITIS ULCERATIVE
     Dosage: 100 MG, QID
     Route: 042
  4. INFLIXIMAB [Suspect]
     Active Substance: INFLIXIMAB
     Indication: COLITIS ULCERATIVE
     Dosage: 5 MG/KG, UNK
     Route: 065

REACTIONS (2)
  - Meningitis bacterial [Recovered/Resolved]
  - Listeriosis [Recovered/Resolved]
